FAERS Safety Report 22394357 (Version 2)
Quarter: 2025Q1

REPORT INFORMATION
  Report Type: Spontaneous
  Country: JP (occurrence: JP)
  Receive Date: 20230601
  Receipt Date: 20250319
  Transmission Date: 20250409
  Serious: Yes (Death, Hospitalization, Other)
  Sender: ALEXION PHARMACEUTICALS
  Company Number: 2023A094939

PATIENT
  Age: 75 Year

DRUGS (12)
  1. LYNPARZA [Suspect]
     Active Substance: OLAPARIB
     Indication: Prostate cancer
  2. LYNPARZA [Suspect]
     Active Substance: OLAPARIB
     Dosage: DOSE UNKNOWN
  3. LYNPARZA [Suspect]
     Active Substance: OLAPARIB
     Dosage: 400 MILLIGRAM, QD NUMBER OF SEPARATE DOSAGES UNKNOWN
  4. LYNPARZA [Suspect]
     Active Substance: OLAPARIB
     Indication: Prostate cancer
     Dosage: 200 MILLIGRAM, QD NUMBER OF SEPARATE DOSAGES UNKNOWN
  5. LEUPLIN [Concomitant]
     Active Substance: LEUPROLIDE ACETATE
  6. LEUPLIN [Concomitant]
     Active Substance: LEUPROLIDE ACETATE
     Route: 065
  7. VONOPRAZAN FUMARATE [Concomitant]
     Active Substance: VONOPRAZAN FUMARATE
  8. VONOPRAZAN FUMARATE [Concomitant]
     Active Substance: VONOPRAZAN FUMARATE
     Route: 065
  9. NAFTOPIDIL [Concomitant]
     Active Substance: NAFTOPIDIL
  10. NAFTOPIDIL [Concomitant]
     Active Substance: NAFTOPIDIL
     Route: 065
  11. DECADRON [Concomitant]
     Active Substance: DEXAMETHASONE
  12. DECADRON [Concomitant]
     Active Substance: DEXAMETHASONE
     Route: 065

REACTIONS (3)
  - Anaemia [Unknown]
  - General physical health deterioration [Recovered/Resolved]
  - Neoplasm malignant [Fatal]
